FAERS Safety Report 9491949 (Version 1)
Quarter: 2013Q3

REPORT INFORMATION
  Report Type: Spontaneous
  Country: US (occurrence: US)
  Receive Date: 20130830
  Receipt Date: 20130830
  Transmission Date: 20140515
  Serious: Yes (Other)
  Sender: FDA-Public Use
  Company Number: US-PFIZER INC-2013248239

PATIENT
  Age: 65 Year
  Sex: Female
  Weight: 105 kg

DRUGS (7)
  1. PRISTIQ [Suspect]
     Indication: MAJOR DEPRESSION
     Dosage: 50 MG, 1X/DAY
     Dates: start: 2013, end: 2013
  2. PRISTIQ [Suspect]
     Dosage: 100 MG, 1X/DAY
     Dates: start: 2013, end: 2013
  3. PRISTIQ [Suspect]
     Dosage: SPLITTING 100MG
     Dates: start: 2013, end: 20130824
  4. CLONAZEPAM [Suspect]
     Indication: ANXIETY
     Dosage: 0.5 MG, AS NEEDED
  5. BENTYL [Suspect]
     Indication: GASTRIC DISORDER
     Dosage: UNK, AS NEEDED
  6. BENADRYL [Suspect]
     Indication: SLEEP DISORDER
     Dosage: UNK, AS NEEDED
  7. AMBIEN [Suspect]
     Indication: SLEEP DISORDER
     Dosage: UNK, AS NEEDED

REACTIONS (6)
  - Mania [Unknown]
  - Sedation [Unknown]
  - Dizziness [Unknown]
  - Insomnia [Unknown]
  - Nightmare [Unknown]
  - Wrong technique in drug usage process [Recovered/Resolved]
